FAERS Safety Report 5527776-4 (Version None)
Quarter: 2007Q4

REPORT INFORMATION
  Report Type: 
  Country: None (occurrence: None)
  Receive Date: 20071128
  Receipt Date: 20071119
  Transmission Date: 20080405
  Serious: Yes (Other)
  Sender: FDA-Public Use
  Company Number: US-JNJFOC-20071107660

PATIENT
  Age: 46 Year
  Sex: Female
  Weight: 70.31 kg

DRUGS (3)
  1. INVEGA [Suspect]
     Indication: SCHIZOAFFECTIVE DISORDER
     Route: 048
  2. KLONOPIN [Concomitant]
     Indication: DRUG USE FOR UNKNOWN INDICATION
     Route: 048
  3. LAMICTAL [Concomitant]
     Indication: DRUG USE FOR UNKNOWN INDICATION
     Route: 048

REACTIONS (3)
  - BRADYCARDIA [None]
  - ELECTROCARDIOGRAM CHANGE [None]
  - WEIGHT DECREASED [None]
